FAERS Safety Report 20712049 (Version 1)
Quarter: 2022Q2

REPORT INFORMATION
  Report Type: Spontaneous
  Country: US (occurrence: US)
  Receive Date: 20220414
  Receipt Date: 20220414
  Transmission Date: 20220720
  Serious: Yes (Death, Hospitalization, Other)
  Sender: FDA-Public Use
  Company Number: US-JAZZ-2022-US-011390

PATIENT
  Age: 66 Year
  Sex: Male
  Weight: 74.1 kg

DRUGS (4)
  1. ZEPZELCA [Suspect]
     Active Substance: LURBINECTEDIN
     Indication: Small cell lung cancer
     Dosage: UNK
     Dates: start: 20211130
  2. TALAZOPARIB [Suspect]
     Active Substance: TALAZOPARIB
     Indication: Product used for unknown indication
     Dosage: UNK
     Dates: start: 20210707, end: 20211117
  3. ATEZOLIZUMAB [Suspect]
     Active Substance: ATEZOLIZUMAB
     Indication: Malignant neoplasm of thorax
     Dosage: UNK
     Dates: start: 20210707, end: 20211028
  4. ATEZOLIZUMAB [Suspect]
     Active Substance: ATEZOLIZUMAB
     Indication: Head and neck cancer

REACTIONS (4)
  - Death [Fatal]
  - Respiratory failure [Not Recovered/Not Resolved]
  - Febrile neutropenia [Not Recovered/Not Resolved]
  - Anaemia [Not Recovered/Not Resolved]

NARRATIVE: CASE EVENT DATE: 20211130
